FAERS Safety Report 8411143-X (Version None)
Quarter: 2012Q2

REPORT INFORMATION
  Report Type: 
  Country: None (occurrence: None)
  Receive Date: 20120605
  Receipt Date: 20120524
  Transmission Date: 20120825
  Serious: Yes (Life-Threatening)
  Sender: FDA-Public Use
  Company Number: JP-FRI-1000030539

PATIENT
  Sex: Male
  Weight: 56 kg

DRUGS (4)
  1. ETIZOLAM [Concomitant]
     Indication: PRODUCT USED FOR UNKNOWN INDICATION
     Dosage: 2 MG
     Route: 048
  2. MIRTAZAPINE [Concomitant]
     Indication: DEPRESSION
     Dates: end: 20120302
  3. ESCITALOPRAM [Suspect]
     Indication: DEPRESSION
     Dosage: 10 MG
     Route: 048
     Dates: start: 20120303
  4. FLUNITRAZEPAM [Concomitant]
     Indication: PRODUCT USED FOR UNKNOWN INDICATION
     Dosage: 1 MG
     Route: 048

REACTIONS (4)
  - THIRST [None]
  - DECREASED APPETITE [None]
  - HYPERKALAEMIA [None]
  - DIARRHOEA [None]
